FAERS Safety Report 5859168-2 (Version None)
Quarter: 2008Q3

REPORT INFORMATION
  Report Type: 
  Country: None (occurrence: None)
  Receive Date: 20080826
  Receipt Date: 20080826
  Transmission Date: 20090109
  Serious: No
  Sender: FDA-Public Use
  Company Number: None

PATIENT
  Sex: Female
  Weight: 124.7392 kg

DRUGS (1)
  1. ZOLOFT [Suspect]
     Indication: DEPRESSION
     Dosage: 100MG BID PO
     Route: 048
     Dates: start: 20061001, end: 20070101

REACTIONS (6)
  - ANXIETY [None]
  - DEPRESSED MOOD [None]
  - FATIGUE [None]
  - FEELING JITTERY [None]
  - PHARMACEUTICAL PRODUCT COMPLAINT [None]
  - SUICIDAL IDEATION [None]
